FAERS Safety Report 19472365 (Version 2)
Quarter: 2021Q3

REPORT INFORMATION
  Report Type: Report from Study
  Country: None (occurrence: BR)
  Receive Date: 20210629
  Receipt Date: 20210804
  Transmission Date: 20211014
  Serious: Yes (Disabling)
  Sender: FDA-Public Use
  Company Number: BR-ABBVIE-21K-020-3964051-00

PATIENT
  Sex: Female
  Weight: 60 kg

DRUGS (4)
  1. LOSARTAN. [Concomitant]
     Active Substance: LOSARTAN
     Indication: HYPERTENSION
  2. RINVOQ [Suspect]
     Active Substance: UPADACITINIB
     Dosage: EVERYDAY AT 7 PM
     Route: 048
     Dates: start: 2021
  3. RINVOQ [Suspect]
     Active Substance: UPADACITINIB
     Indication: RHEUMATOID ARTHRITIS
     Dosage: 1 TABLET AT NIGHT, ALWAYS AT 7 PM
     Route: 048
     Dates: start: 20210329, end: 2021
  4. HYDROCHLOROTHIAZIDE. [Concomitant]
     Active Substance: HYDROCHLOROTHIAZIDE
     Indication: PRODUCT USED FOR UNKNOWN INDICATION
     Dates: start: 202103

REACTIONS (16)
  - Peripheral swelling [Unknown]
  - Pain in extremity [Recovering/Resolving]
  - Pain [Unknown]
  - Mobility decreased [Not Recovered/Not Resolved]
  - Discouragement [Unknown]
  - Joint swelling [Not Recovered/Not Resolved]
  - Pain in extremity [Unknown]
  - Peripheral swelling [Recovering/Resolving]
  - Asthenia [Unknown]
  - Musculoskeletal stiffness [Not Recovered/Not Resolved]
  - Drug ineffective [Unknown]
  - Mobility decreased [Unknown]
  - Arthralgia [Not Recovered/Not Resolved]
  - Weight decreased [Recovered/Resolved]
  - Therapeutic response unexpected [Unknown]
  - Loss of personal independence in daily activities [Recovered/Resolved]

NARRATIVE: CASE EVENT DATE: 2021
